FAERS Safety Report 4296864-5 (Version None)
Quarter: 2004Q1

REPORT INFORMATION
  Report Type: 
  Country: None (occurrence: None)
  Receive Date: 20040126
  Receipt Date: 20030827
  Transmission Date: 20041129
  Serious: No
  Sender: FDA-Public Use
  Company Number: USA030845592

PATIENT
  Age: 13 Year
  Sex: Male

DRUGS (1)
  1. STRATTERA [Suspect]
     Dosage: 60 MG/IN THE MORNING
     Dates: start: 20030711

REACTIONS (2)
  - SOMNOLENCE [None]
  - WEIGHT FLUCTUATION [None]
